FAERS Safety Report 5011541-0 (Version None)
Quarter: 2006Q2

REPORT INFORMATION
  Report Type: 
  Country: None (occurrence: None)
  Receive Date: 20060524
  Receipt Date: 20060516
  Transmission Date: 20061013
  Serious: Yes (Hospitalization)
  Sender: FDA-Public Use
  Company Number: US-2006-012201

PATIENT
  Age: 71 Year
  Sex: Male

DRUGS (11)
  1. LEUKINE [Suspect]
     Indication: CHRONIC LYMPHOCYTIC LEUKAEMIA
     Dosage: 250 UG, 3X/WEEK X 4 WEEKS, SUBCUTANEOUS
     Route: 058
     Dates: start: 20060101, end: 20060225
  2. RITUXIMAB(RITUXIMAB) [Suspect]
     Indication: CHRONIC LYMPHOCYTIC LEUKAEMIA
     Dosage: 350 MG/M2, 1X/WEEK X FOR 8 WEEKS, INTRAVENOUS
     Route: 042
     Dates: start: 20060101, end: 20060223
  3. LASIX [Concomitant]
  4. K-DUR 10 [Concomitant]
  5. ACCUPRIL [Concomitant]
  6. ALLOPURINOL [Concomitant]
  7. SYNTHROID [Concomitant]
  8. DIGITEX (DIGOXIN) [Concomitant]
  9. ASPIRIN [Concomitant]
  10. MULTIPLE VITAMINS (RETINOL) [Concomitant]
  11. GINKGO BILOBA (GINKGO BILOBA) [Concomitant]

REACTIONS (2)
  - CEREBROVASCULAR ACCIDENT [None]
  - TRANSIENT ISCHAEMIC ATTACK [None]
